FAERS Safety Report 6878462-X (Version None)
Quarter: 2010Q3

REPORT INFORMATION
  Report Type: 
  Country: None (occurrence: None)
  Receive Date: 20100728
  Receipt Date: 20100723
  Transmission Date: 20110219
  Serious: Yes (Hospitalization)
  Sender: FDA-Public Use
  Company Number: US-MERCK-1007USA02941

PATIENT
  Age: 83 Year
  Sex: Male

DRUGS (9)
  1. HYZAAR [Suspect]
     Indication: HYPERTENSION
     Route: 048
     Dates: end: 20100709
  2. NAMENDA [Suspect]
     Indication: DEMENTIA ALZHEIMER'S TYPE
     Route: 048
     Dates: start: 20090601, end: 20090601
  3. NAMENDA [Suspect]
     Route: 048
     Dates: start: 20090601, end: 20100709
  4. NAMENDA [Suspect]
     Route: 048
     Dates: start: 20090601, end: 20090601
  5. NAMENDA [Suspect]
     Dosage: 10MG QAM, 5 MG QHS.
     Route: 048
     Dates: start: 20090601, end: 20090601
  6. ARICEPT [Concomitant]
     Indication: DEMENTIA ALZHEIMER'S TYPE
     Route: 065
     Dates: start: 20090601
  7. AGGRENOX [Concomitant]
     Indication: TRANSIENT ISCHAEMIC ATTACK
     Route: 065
  8. SPIRONOLACTONE [Suspect]
     Indication: HYPERTENSION
     Route: 048
     Dates: end: 20100709
  9. NIACIN [Suspect]
     Indication: DEMENTIA ALZHEIMER'S TYPE
     Route: 065
     Dates: start: 20091201, end: 20100709

REACTIONS (2)
  - HEPATOTOXICITY [None]
  - RENAL FAILURE ACUTE [None]
